FAERS Safety Report 8170855-6 (Version None)
Quarter: 2012Q1

REPORT INFORMATION
  Report Type: 
  Country: None (occurrence: None)
  Receive Date: 20120104
  Receipt Date: 20111014
  Transmission Date: 20120608
  Serious: No
  Sender: FDA-Public Use
  Company Number: 2011HGS-002646

PATIENT
  Age: 48 Year
  Sex: Female
  Weight: 110.6777 kg

DRUGS (13)
  1. BENLYSTA [Suspect]
     Indication: SYSTEMIC LUPUS ERYTHEMATOSUS
     Dosage: 1 IN 2 WK, INTRAVENOUS DRIP
     Route: 041
     Dates: start: 20110909
  2. VOLTAREN [Concomitant]
  3. DEXILANT [Concomitant]
  4. PLAQUENIL [Concomitant]
  5. FISH OIL [Concomitant]
  6. HYDROCODONE [Concomitant]
  7. ONDANSETRON [Concomitant]
  8. IMURAN [Concomitant]
  9. DICLOFENAC [Concomitant]
  10. VERAMIST (FLUTICASONE FUROATE) [Concomitant]
  11. FENOFIBRIC ACID (TRILIPIX) [Suspect]
  12. VITAMIN D [Concomitant]
  13. SYNTHROID [Suspect]

REACTIONS (12)
  - NAUSEA [None]
  - THYROID DISORDER [None]
  - ABDOMINAL DISTENSION [None]
  - WEIGHT INCREASED [None]
  - HYPERTENSION [None]
  - MIGRAINE WITH AURA [None]
  - URINARY TRACT INFECTION [None]
  - BONE PAIN [None]
  - VOMITING [None]
  - FATIGUE [None]
  - BLOOD CHOLESTEROL INCREASED [None]
  - PAIN IN EXTREMITY [None]
